FAERS Safety Report 5402683-6 (Version None)
Quarter: 2007Q3

REPORT INFORMATION
  Report Type: 
  Country: None (occurrence: None)
  Receive Date: 20070801
  Receipt Date: 20070731
  Transmission Date: 20080115
  Serious: Yes (Other)
  Sender: FDA-Public Use
  Company Number: A0667401A

PATIENT
  Age: 48 Year
  Sex: Female
  Weight: 60 kg

DRUGS (5)
  1. WELLBUTRIN SR [Suspect]
     Indication: DRUG USE FOR UNKNOWN INDICATION
     Dosage: 150MG PER DAY
     Dates: start: 20070130, end: 20070302
  2. ESTRADIOL [Concomitant]
  3. DUPHASTON [Concomitant]
     Dosage: 10MG VARIABLE DOSE
     Dates: start: 20030101
  4. LEVOXYL [Concomitant]
     Dates: start: 20010101
  5. CLONAZEPAM [Concomitant]
     Dates: start: 20070130, end: 20070214

REACTIONS (8)
  - DIPLOPIA [None]
  - GENITAL ERYTHEMA [None]
  - MYDRIASIS [None]
  - OEDEMA GENITAL [None]
  - PAIN [None]
  - PRURITUS [None]
  - SALIVARY HYPERSECRETION [None]
  - TONGUE PARALYSIS [None]
